FAERS Safety Report 13410126 (Version 2)
Quarter: 2017Q2

REPORT INFORMATION
  Report Type: Report from Study
  Country: AR (occurrence: AR)
  Receive Date: 20170406
  Receipt Date: 20170417
  Transmission Date: 20170830
  Serious: Yes (Other)
  Sender: FDA-Public Use
  Company Number: PHHY2017AR049528

PATIENT
  Age: 61 Year
  Sex: Female

DRUGS (1)
  1. SANDOSTATIN LAR DEPOT [Suspect]
     Active Substance: OCTREOTIDE ACETATE
     Indication: ACROMEGALY
     Dosage: 30 MG, UNK
     Route: 065
     Dates: start: 20160719

REACTIONS (3)
  - Recurrent cancer [Not Recovered/Not Resolved]
  - Hypoaesthesia [Unknown]
  - Muscular weakness [Unknown]

NARRATIVE: CASE EVENT DATE: 20161228
